FAERS Safety Report 6692049-3 (Version None)
Quarter: 2010Q2

REPORT INFORMATION
  Report Type: 
  Country: None (occurrence: None)
  Receive Date: 20100419
  Receipt Date: 20100408
  Transmission Date: 20101027
  Serious: Yes (Hospitalization)
  Sender: FDA-Public Use
  Company Number: 230006M05ESP

PATIENT
  Age: 40 Year
  Sex: Female
  Weight: 50 kg

DRUGS (3)
  1. REBIF [Suspect]
     Indication: MULTIPLE SCLEROSIS
     Dosage: 22, 3 IN 1 WK, SUBCUTANEOUS; 44, 3 IN 1 WK, SUBCUTANEOUS
     Route: 058
     Dates: start: 20040213, end: 20050509
  2. REBIF [Suspect]
     Indication: MULTIPLE SCLEROSIS
     Dosage: 22, 3 IN 1 WK, SUBCUTANEOUS; 44, 3 IN 1 WK, SUBCUTANEOUS
     Route: 058
     Dates: start: 20050529
  3. MODAFINIL [Concomitant]

REACTIONS (4)
  - BLOOD CREATINE PHOSPHOKINASE MB INCREASED [None]
  - CARDIOTOXICITY [None]
  - CHEST PAIN [None]
  - TROPONIN T INCREASED [None]
